FAERS Safety Report 7526463-0 (Version None)
Quarter: 2011Q2

REPORT INFORMATION
  Report Type: 
  Country: None (occurrence: None)
  Receive Date: 20110606
  Receipt Date: 20110602
  Transmission Date: 20111010
  Serious: Yes (Death)
  Sender: FDA-Public Use
  Company Number: BR-ASTRAZENECA-2011SE33949

PATIENT
  Sex: Male

DRUGS (1)
  1. SEROQUEL [Suspect]
     Indication: SENILE DEMENTIA
     Dosage: DAILY
     Route: 048
     Dates: start: 19970101, end: 20100201

REACTIONS (2)
  - OFF LABEL USE [None]
  - DEATH [None]
